FAERS Safety Report 9721038 (Version 1)
Quarter: 2013Q4

REPORT INFORMATION
  Report Type: Spontaneous
  Country: US (occurrence: US)
  Receive Date: 20131129
  Receipt Date: 20131129
  Transmission Date: 20140711
  Serious: No
  Sender: FDA-Public Use
  Company Number: US-B.I. PHARMACEUTICALS,INC./RIDGEFIELD-2013-BI-38227BP

PATIENT
  Age: 87 Year
  Sex: Female

DRUGS (4)
  1. COMBIVENT [Suspect]
     Dosage: STRENGTH: 20 MCG / 100 MCG;
     Route: 055
     Dates: start: 2013
  2. COMBIVENT INHALATION AEROSOL [Concomitant]
     Indication: CHRONIC OBSTRUCTIVE PULMONARY DISEASE
     Dosage: STRENGTH: 18 MCG / 103 MCG;
     Route: 055
  3. PRILOSEC [Concomitant]
     Dosage: 20 MG
     Route: 048
  4. VITAMINS [Concomitant]
     Indication: OSTEOPOROSIS
     Route: 048

REACTIONS (1)
  - Aphonia [Not Recovered/Not Resolved]
